FAERS Safety Report 8635009 (Version 3)
Quarter: 2013Q1

REPORT INFORMATION
  Report Type: Spontaneous
  Country: JP (occurrence: None)
  Receive Date: 20120612
  Receipt Date: 20130225
  Transmission Date: 20140127
  Serious: Yes (Other)
  Sender: FDA-Public Use
  Company Number: 2012-002077

PATIENT
  Age: 79 Year
  Sex: Female

DRUGS (1)
  1. RISEDRONATE SODIUM [Suspect]
     Dosage: , ORAL
     Route: 048

REACTIONS (5)
  - ATYPICAL FEMUR FRACTURE [None]
  - Bone disorder [None]
  - Impaired healing [None]
  - Disease complication [None]
  - Injury [None]
